FAERS Safety Report 22349134 (Version 1)
Quarter: 2023Q2

REPORT INFORMATION
  Report Type: Spontaneous
  Country: US (occurrence: None)
  Receive Date: 20230519
  Receipt Date: 20230519
  Transmission Date: 20230721
  Serious: Yes (Other)
  Sender: FDA-Public Use
  Company Number: None

PATIENT
  Age: 57 Year
  Sex: Male

DRUGS (3)
  1. CABENUVA [Suspect]
     Active Substance: CABOTEGRAVIR\RILPIVIRINE
     Indication: HIV infection
     Dosage: OTHER QUANTITY : 600-900;?OTHER FREQUENCY : 1 Q 2 MONTHS;?
     Route: 041
     Dates: start: 20230324, end: 20230518
  2. TADALAFIL [Concomitant]
     Active Substance: TADALAFIL
  3. HYDROXYZINE [Concomitant]
     Active Substance: HYDROXYZINE HYDROCHLORIDE

REACTIONS (2)
  - Fatigue [None]
  - Myalgia [None]

NARRATIVE: CASE EVENT DATE: 20230518
